FAERS Safety Report 21972029 (Version 5)
Quarter: 2023Q2

REPORT INFORMATION
  Report Type: Report from Study
  Country: US (occurrence: US)
  Receive Date: 20230209
  Receipt Date: 20230522
  Transmission Date: 20230722
  Serious: No
  Sender: FDA-Public Use
  Company Number: US-002147023-NVSC2023US023844

PATIENT
  Sex: Female

DRUGS (2)
  1. COSENTYX [Suspect]
     Active Substance: SECUKINUMAB
     Indication: Psoriasis
     Dosage: 300 MG, QW
     Route: 058
     Dates: start: 202301
  2. COSENTYX [Suspect]
     Active Substance: SECUKINUMAB
     Dosage: 300 MG, QMO
     Route: 058
     Dates: start: 20230301

REACTIONS (8)
  - Injection site bruising [Recovered/Resolved]
  - Injection site pain [Recovered/Resolved]
  - Hypoaesthesia [Recovering/Resolving]
  - Injection site pain [Recovering/Resolving]
  - Injection site paraesthesia [Recovering/Resolving]
  - Device leakage [Recovered/Resolved]
  - Injection site haemorrhage [Recovered/Resolved]
  - Injection site haemorrhage [Recovering/Resolving]
